FAERS Safety Report 5124701-5 (Version None)
Quarter: 2006Q4

REPORT INFORMATION
  Report Type: 
  Country: None (occurrence: None)
  Receive Date: 20061006
  Receipt Date: 20061006
  Transmission Date: 20070319
  Serious: Yes (Hospitalization)
  Sender: FDA-Public Use
  Company Number: None

PATIENT
  Age: 44 Year
  Sex: Female
  Weight: 68.0396 kg

DRUGS (1)
  1. MEHTADONE 10 MG ROXANN [Suspect]
     Indication: ABDOMINAL PAIN
     Dosage: 20 MG 3 TIMES/DAY PO
     Route: 048
     Dates: start: 20060913, end: 20060930

REACTIONS (6)
  - DRUG INEFFECTIVE [None]
  - DRUG WITHDRAWAL SYNDROME [None]
  - LACRIMATION INCREASED [None]
  - PAIN [None]
  - PHARMACEUTICAL PRODUCT COMPLAINT [None]
  - RHINORRHOEA [None]
